FAERS Safety Report 8478439-7 (Version None)
Quarter: 2012Q2

REPORT INFORMATION
  Report Type: 
  Country: None (occurrence: None)
  Receive Date: 20120629
  Receipt Date: 20111005
  Transmission Date: 20120825
  Serious: No
  Sender: FDA-Public Use
  Company Number: US-ABBOTT-11P-163-0862399-00

PATIENT
  Age: 57 Year
  Sex: Male
  Weight: 83.99 kg

DRUGS (6)
  1. NORVIR [Suspect]
  2. NORVIR [Suspect]
     Indication: HIV INFECTION
     Dates: start: 20060101
  3. APTIVUS [Concomitant]
     Indication: HIV INFECTION
  4. COMBIVIR [Concomitant]
     Indication: HIV INFECTION
  5. ISENTRESS [Concomitant]
     Indication: HIV INFECTION
  6. VIREAD [Concomitant]
     Indication: HIV INFECTION

REACTIONS (1)
  - DRUG SCREEN FALSE POSITIVE [None]
